FAERS Safety Report 9824984 (Version 1)
Quarter: 2014Q1

REPORT INFORMATION
  Report Type: Spontaneous
  Country: US (occurrence: US)
  Receive Date: 20140117
  Receipt Date: 20140117
  Transmission Date: 20141002
  Serious: Yes (Hospitalization)
  Sender: FDA-Public Use
  Company Number: US-JNJFOC-20140104189

PATIENT
  Age: 40 Year
  Sex: Male

DRUGS (1)
  1. XARELTO [Suspect]
     Indication: PULMONARY EMBOLISM
     Route: 048

REACTIONS (2)
  - Cerebrovascular accident [Unknown]
  - Pulmonary embolism [Unknown]
